FAERS Safety Report 7346551-1 (Version None)
Quarter: 2011Q1

REPORT INFORMATION
  Report Type: 
  Country: None (occurrence: None)
  Receive Date: 20110311
  Receipt Date: 20110228
  Transmission Date: 20110831
  Serious: Yes (Hospitalization)
  Sender: FDA-Public Use
  Company Number: IT-SANOFI-AVENTIS-F06200900009

PATIENT
  Age: 73 Year
  Sex: Male

DRUGS (3)
  1. OXALIPLATIN [Suspect]
     Indication: COLORECTAL CANCER METASTATIC
     Route: 041
  2. BEVACIZUMAB [Suspect]
     Indication: COLORECTAL CANCER METASTATIC
     Route: 042
     Dates: end: 20090728
  3. CAPECITABINE [Suspect]
     Indication: COLORECTAL CANCER METASTATIC
     Route: 048
     Dates: end: 20090728

REACTIONS (9)
  - PERFORMANCE STATUS DECREASED [None]
  - ASTHENIA [None]
  - DIARRHOEA [None]
  - RENAL FAILURE ACUTE [None]
  - NAUSEA [None]
  - PULMONARY EMBOLISM [None]
  - PERITONITIS [None]
  - INTESTINAL OBSTRUCTION [None]
  - ABSCESS [None]
